FAERS Safety Report 17414171 (Version 1)
Quarter: 2020Q1

REPORT INFORMATION
  Report Type: Report from Study
  Country: IN (occurrence: IN)
  Receive Date: 20200213
  Receipt Date: 20200213
  Transmission Date: 20200409
  Serious: Yes (Other)
  Sender: FDA-Public Use
  Company Number: IN-ROCHE-2547961

PATIENT
  Age: 23 Year
  Sex: Male

DRUGS (3)
  1. RITUXIMAB. [Suspect]
     Active Substance: RITUXIMAB
     Indication: PROPHYLAXIS AGAINST TRANSPLANT REJECTION
     Route: 042
  2. TACROLIMUS. [Suspect]
     Active Substance: TACROLIMUS
     Indication: PROPHYLAXIS AGAINST TRANSPLANT REJECTION
     Dosage: TROUGH LEVEL OF 5-10 NG/ML.
     Route: 065
  3. PROSTAGLANDIN E1 [Concomitant]
     Active Substance: ALPROSTADIL

REACTIONS (6)
  - Bacillus infection [Unknown]
  - Enterococcal infection [Unknown]
  - Bacterial infection [Unknown]
  - Biliary tract disorder [Unknown]
  - Klebsiella infection [Unknown]
  - Stenotrophomonas infection [Unknown]
